FAERS Safety Report 6447167-1 (Version None)
Quarter: 2009Q4

REPORT INFORMATION
  Report Type: 
  Country: None (occurrence: None)
  Receive Date: 20091119
  Receipt Date: 20091109
  Transmission Date: 20100525
  Serious: Yes (Death, Hospitalization)
  Sender: FDA-Public Use
  Company Number: US-PFIZER INC-2009265894

PATIENT
  Sex: Female

DRUGS (13)
  1. IRINOTECAN HCL [Suspect]
     Dates: start: 20090818
  2. AVASTIN [Suspect]
     Dosage: UNK
     Dates: start: 20090818
  3. CT-322 [Suspect]
     Indication: GLIOBLASTOMA MULTIFORME
     Dosage: 32 MG, 1X/DAY
     Route: 042
     Dates: start: 20090225, end: 20090804
  4. TEMOZOLOMIDE [Suspect]
     Indication: GLIOBLASTOMA MULTIFORME
     Dosage: 1 DF 1 DAY
     Route: 048
     Dates: start: 20090225, end: 20090801
  5. PAXIL [Concomitant]
  6. LOTREL [Concomitant]
  7. KEPPRA [Concomitant]
     Dosage: UNK
     Dates: start: 20090101
  8. POTASSIUM CHLORIDE [Concomitant]
  9. CALCIUM + VITAMIN D [Concomitant]
  10. MULTIPLE VITAMINS [Concomitant]
  11. PRILOSEC [Concomitant]
     Dosage: UNK
     Dates: start: 20090101
  12. BACTRIM [Concomitant]
     Dosage: UNK
     Dates: start: 20090225
  13. DECADRON [Concomitant]
     Dosage: UNK
     Dates: start: 20090806

REACTIONS (7)
  - ASTHENIA [None]
  - BRAIN NEOPLASM [None]
  - DEHYDRATION [None]
  - MALIGNANT NEOPLASM PROGRESSION [None]
  - NEUTROPENIA [None]
  - PANCYTOPENIA [None]
  - THROMBOCYTOPENIA [None]
